FAERS Safety Report 23738749 (Version 1)
Quarter: 2024Q2

REPORT INFORMATION
  Report Type: Spontaneous
  Country: DE (occurrence: DE)
  Receive Date: 20240413
  Receipt Date: 20240413
  Transmission Date: 20240716
  Serious: Yes (Other)
  Sender: FDA-Public Use
  Company Number: DE-002147023-NVSC2024DE061944

PATIENT
  Sex: Female
  Weight: 53.9 kg

DRUGS (3)
  1. LETROZOLE [Suspect]
     Active Substance: LETROZOLE
     Indication: Breast cancer metastatic
     Dosage: 2.5 MILLIGRAM, ONCE A DAY
     Route: 048
     Dates: start: 20190520
  2. KISQALI [Suspect]
     Active Substance: RIBOCICLIB
     Indication: Breast cancer metastatic
     Dosage: 600 MILLIGRAM, ONCE A DAY (600 MG, QD, (REGIMEN 21 DAYS INTAKE, 7 DAYS PAUSE))
     Route: 048
     Dates: start: 20190520, end: 20210302
  3. KISQALI [Suspect]
     Active Substance: RIBOCICLIB
     Dosage: 2400 MILLIGRAM, ONCE A DAY (600 MG, QID, (REGIMEN 21 DAYS INTAKE, 7 DAYS PAUSE))
     Route: 048
     Dates: start: 20210312

REACTIONS (1)
  - Gastrointestinal infection [Recovered/Resolved]

NARRATIVE: CASE EVENT DATE: 20240214
